FAERS Safety Report 7876690-8 (Version None)
Quarter: 2011Q4

REPORT INFORMATION
  Report Type: 
  Country: None (occurrence: None)
  Receive Date: 20111031
  Receipt Date: 20111018
  Transmission Date: 20120403
  Serious: Yes (Hospitalization)
  Sender: FDA-Public Use
  Company Number: JP-MPIJNJ-2011-05081

PATIENT

DRUGS (3)
  1. VELCADE [Suspect]
     Indication: MULTIPLE MYELOMA
     Dosage: 2 MG, UNK
     Route: 042
     Dates: start: 20110712, end: 20110812
  2. DOXORUBICIN HCL [Suspect]
     Indication: MULTIPLE MYELOMA
     Dosage: 47 MG, UNK
     Route: 042
     Dates: start: 20110715, end: 20110916
  3. VELCADE [Suspect]
     Dosage: UNK
     Route: 042
     Dates: start: 20111020, end: 20111020

REACTIONS (1)
  - BRONCHIOLITIS [None]
